FAERS Safety Report 10206429 (Version 17)
Quarter: 2019Q3

REPORT INFORMATION
  Report Type: Spontaneous
  Country: CA (occurrence: CA)
  Receive Date: 20140530
  Receipt Date: 20190802
  Transmission Date: 20191004
  Serious: Yes (Other)
  Sender: FDA-Public Use
  Company Number: CA-ROCHE-1408363

PATIENT
  Age: 46 Year
  Sex: Female

DRUGS (24)
  1. XOLAIR [Suspect]
     Active Substance: OMALIZUMAB
     Route: 058
     Dates: start: 20131231
  2. XOLAIR [Suspect]
     Active Substance: OMALIZUMAB
     Route: 058
     Dates: start: 20140812
  3. XOLAIR [Suspect]
     Active Substance: OMALIZUMAB
     Route: 058
     Dates: start: 20170314
  4. PULMICORT TURBUHALER [Concomitant]
     Active Substance: BUDESONIDE
     Indication: PRODUCT USED FOR UNKNOWN INDICATION
     Route: 065
  5. ALVESCO [Concomitant]
     Active Substance: CICLESONIDE
     Route: 065
     Dates: start: 201410
  6. XOLAIR [Suspect]
     Active Substance: OMALIZUMAB
     Indication: ASTHMA
     Route: 058
     Dates: start: 20110526
  7. XOLAIR [Suspect]
     Active Substance: OMALIZUMAB
     Route: 058
     Dates: start: 20131106
  8. XOLAIR [Suspect]
     Active Substance: OMALIZUMAB
     Route: 058
     Dates: start: 20140617
  9. XOLAIR [Suspect]
     Active Substance: OMALIZUMAB
     Route: 058
     Dates: start: 20161025
  10. ALVESCO [Concomitant]
     Active Substance: CICLESONIDE
     Route: 065
  11. XOLAIR [Suspect]
     Active Substance: OMALIZUMAB
     Route: 058
     Dates: start: 20120209
  12. XOLAIR [Suspect]
     Active Substance: OMALIZUMAB
     Route: 058
     Dates: start: 20140226
  13. XOLAIR [Suspect]
     Active Substance: OMALIZUMAB
     Route: 058
     Dates: start: 20161220
  14. XOLAIR [Suspect]
     Active Substance: OMALIZUMAB
     Route: 058
     Dates: start: 20141104
  15. XOLAIR [Suspect]
     Active Substance: OMALIZUMAB
     Route: 058
     Dates: start: 20151027
  16. XOLAIR [Suspect]
     Active Substance: OMALIZUMAB
     Route: 058
     Dates: start: 20160927
  17. ALVESCO [Concomitant]
     Active Substance: CICLESONIDE
     Indication: UPPER RESPIRATORY TRACT CONGESTION
     Dosage: DOSE INCREASED FROM 6 MG TO 8MG
     Route: 065
     Dates: start: 201410
  18. XOLAIR [Suspect]
     Active Substance: OMALIZUMAB
     Route: 058
     Dates: start: 20131204
  19. XOLAIR [Suspect]
     Active Substance: OMALIZUMAB
     Dosage: UNK
     Route: 058
     Dates: start: 20170804
  20. XOLAIR [Suspect]
     Active Substance: OMALIZUMAB
     Route: 058
     Dates: start: 20161122
  21. IBUPROFEN. [Concomitant]
     Active Substance: IBUPROFEN
     Indication: PRODUCT USED FOR UNKNOWN INDICATION
     Route: 065
  22. XOLAIR [Suspect]
     Active Substance: OMALIZUMAB
     Route: 058
     Dates: start: 20150317
  23. XOLAIR [Suspect]
     Active Substance: OMALIZUMAB
     Route: 058
     Dates: start: 20181109
  24. BRICANYL [Concomitant]
     Active Substance: TERBUTALINE SULFATE
     Indication: PRODUCT USED FOR UNKNOWN INDICATION
     Route: 065

REACTIONS (29)
  - Body temperature decreased [Not Recovered/Not Resolved]
  - Pain in extremity [Unknown]
  - Skeletal injury [Recovering/Resolving]
  - Oedema [Recovered/Resolved]
  - Bronchitis [Unknown]
  - Anxiety [Unknown]
  - Erythema [Unknown]
  - Skin abrasion [Recovering/Resolving]
  - Breath sounds abnormal [Unknown]
  - Gait disturbance [Unknown]
  - Wheezing [Not Recovered/Not Resolved]
  - Injection site swelling [Recovered/Resolved]
  - Limb injury [Unknown]
  - Road traffic accident [Unknown]
  - Muscle injury [Recovering/Resolving]
  - Pain [Not Recovered/Not Resolved]
  - Rhonchi [Unknown]
  - Candida infection [Unknown]
  - Nasopharyngitis [Not Recovered/Not Resolved]
  - Hypotension [Unknown]
  - Gastroenteritis viral [Recovered/Resolved]
  - Progesterone decreased [Unknown]
  - Mouth injury [Recovering/Resolving]
  - Upper respiratory tract infection [Recovering/Resolving]
  - Urinary tract infection [Unknown]
  - Food allergy [Unknown]
  - Scratch [Recovering/Resolving]
  - Chest discomfort [Not Recovered/Not Resolved]
  - Upper respiratory tract congestion [Unknown]

NARRATIVE: CASE EVENT DATE: 201112
